FAERS Safety Report 6277974-X (Version None)
Quarter: 2009Q3

REPORT INFORMATION
  Report Type: 
  Country: None (occurrence: None)
  Receive Date: 20090722
  Receipt Date: 20090715
  Transmission Date: 20100115
  Serious: Yes (Hospitalization)
  Sender: FDA-Public Use
  Company Number: US-GILEAD-2009-0022682

PATIENT
  Sex: Female

DRUGS (21)
  1. LETAIRIS [Suspect]
     Indication: PULMONARY ARTERIAL HYPERTENSION
  2. REVATIO [Concomitant]
  3. PROCARDIA [Concomitant]
  4. NIFEDIPINE [Concomitant]
  5. PROPAFENONE HCL [Concomitant]
  6. LASIX [Concomitant]
  7. ASPIRIN [Concomitant]
  8. ALLERGY [Concomitant]
  9. MOMETAFURATE [Concomitant]
  10. MENTAX [Concomitant]
  11. TRANSDERM PATCH [Concomitant]
  12. EVOXAC [Concomitant]
  13. ALENDRONATE SODIUM [Concomitant]
  14. PREDNISONE TAB [Concomitant]
  15. MOBIC [Concomitant]
  16. SYNTHROID [Concomitant]
  17. ACTONEL [Concomitant]
  18. PANTOPRAZOLE SODIUM [Concomitant]
  19. NEXIUM [Concomitant]
  20. POTASSIUM CHLORIDE [Concomitant]
  21. CALCIUM [Concomitant]

REACTIONS (2)
  - ARTERIOVENOUS MALFORMATION [None]
  - RECTAL HAEMORRHAGE [None]
